FAERS Safety Report 24090423 (Version 1)
Quarter: 2024Q3

REPORT INFORMATION
  Report Type: Spontaneous
  Country: RO (occurrence: RO)
  Receive Date: 20240715
  Receipt Date: 20240715
  Transmission Date: 20241017
  Serious: No
  Sender: PIERRE FABRE MEDICAMENT
  Company Number: RO-PFM-2021-08309

PATIENT
  Sex: Female

DRUGS (3)
  1. PROPRANOLOL [Suspect]
     Active Substance: PROPRANOLOL HYDROCHLORIDE
     Indication: Off label use
     Dosage: 0.5-1.0 MG/KG/DAY
     Route: 065
  2. PROPRANOLOL [Suspect]
     Active Substance: PROPRANOLOL HYDROCHLORIDE
     Dosage: 3.0 MG/KG/DAY
     Route: 065
  3. SIROLIMUS [Concomitant]
     Active Substance: SIROLIMUS
     Indication: Vascular malformation
     Dosage: 0.45-0.5 MG/M2
     Route: 065

REACTIONS (5)
  - Hypertriglyceridaemia [Unknown]
  - Dyslipidaemia [Unknown]
  - High density lipoprotein decreased [Unknown]
  - Product use in unapproved indication [Unknown]
  - Off label use [Unknown]
